FAERS Safety Report 6655732-1 (Version None)
Quarter: 2010Q1

REPORT INFORMATION
  Report Type: 
  Country: None (occurrence: None)
  Receive Date: 20100329
  Receipt Date: 20100319
  Transmission Date: 20100710
  Serious: Yes (Other)
  Sender: FDA-Public Use
  Company Number: CR-ROCHE-674138

PATIENT
  Sex: Female

DRUGS (3)
  1. TRASTUZUMAB [Suspect]
     Dosage: FORM: VIAL
     Route: 042
     Dates: start: 20091111
  2. PERTUZUMAB [Suspect]
     Dosage: FORM: VIAL
     Route: 042
     Dates: start: 20091110
  3. DOCETAXEL [Suspect]
     Route: 042
     Dates: start: 20091111

REACTIONS (1)
  - ABORTION SPONTANEOUS [None]
